FAERS Safety Report 6638208-7 (Version None)
Quarter: 2010Q1

REPORT INFORMATION
  Report Type: 
  Country: None (occurrence: None)
  Receive Date: 20100315
  Receipt Date: 20100315
  Transmission Date: 20100710
  Serious: No
  Sender: FDA-Public Use
  Company Number: None

PATIENT

DRUGS (8)
  1. TRAMADOL HCL [Suspect]
     Indication: ARTHRITIS
     Dosage: 50 MG TID PO
     Route: 048
     Dates: start: 20091229, end: 20100112
  2. CEPHALEXIN [Concomitant]
  3. IBUPROFEN [Concomitant]
  4. TRAMADOL HCL [Concomitant]
  5. ESOMEPRAZOLE [Concomitant]
  6. NAPROXEN [Concomitant]
  7. DIAZEPAM [Concomitant]
  8. VALIUM [Concomitant]

REACTIONS (2)
  - PRURITUS [None]
  - RASH ERYTHEMATOUS [None]
